FAERS Safety Report 18168129 (Version 2)
Quarter: 2020Q4

REPORT INFORMATION
  Report Type: Spontaneous
  Country: GB (occurrence: GB)
  Receive Date: 20200819
  Receipt Date: 20201022
  Transmission Date: 20210113
  Serious: Yes (Life-Threatening, Hospitalization)
  Sender: FDA-Public Use
  Company Number: GB-TORRENT-00023958

PATIENT
  Age: 44 Year
  Sex: Male

DRUGS (3)
  1. DULOXETINE. [Suspect]
     Active Substance: DULOXETINE
     Indication: DEPRESSED MOOD
     Dosage: MANE, ONGOING TREATMENT
     Route: 048
     Dates: start: 20200712
  2. ZOPICLONE [Concomitant]
     Active Substance: ZOPICLONE
     Indication: INITIAL INSOMNIA
     Dosage: UNKNOWN
     Dates: start: 20200712
  3. PROPRANOLOL [Concomitant]
     Active Substance: PROPRANOLOL HYDROCHLORIDE
     Indication: ANXIETY
     Dosage: UNKNOWN
     Dates: start: 20200710, end: 20200712

REACTIONS (3)
  - Suicidal ideation [Unknown]
  - Suicide attempt [Unknown]
  - Condition aggravated [Unknown]

NARRATIVE: CASE EVENT DATE: 20200715
